FAERS Safety Report 14141544 (Version 1)
Quarter: 2017Q4

REPORT INFORMATION
  Report Type: Spontaneous
  Country: US (occurrence: US)
  Receive Date: 20171028
  Receipt Date: 20171028
  Transmission Date: 20180321
  Serious: Yes (Other)
  Sender: FDA-Public Use
  Company Number: None

PATIENT
  Age: 20 Year
  Sex: Female
  Weight: 50 kg

DRUGS (1)
  1. RISPERIDAL [Suspect]
     Active Substance: RISPERIDONE
     Route: 048

REACTIONS (2)
  - Nasal congestion [None]
  - Rhinitis [None]
